FAERS Safety Report 5318643-X (Version None)
Quarter: 2007Q2

REPORT INFORMATION
  Report Type: 
  Country: None (occurrence: None)
  Receive Date: 20070508
  Receipt Date: 20070427
  Transmission Date: 20071010
  Serious: Yes (Other)
  Sender: FDA-Public Use
  Company Number: PHEH2007US04745

PATIENT
  Age: 78 Year
  Sex: Female

DRUGS (5)
  1. ZELNORM [Suspect]
     Indication: IRRITABLE BOWEL SYNDROME
     Dosage: 6 MG, BID
     Route: 065
     Dates: start: 20060101, end: 20070408
  2. TOPROL-XL [Concomitant]
  3. IMDUR [Concomitant]
     Indication: ANGINA PECTORIS
  4. LIPITOR [Concomitant]
     Indication: HYPERLIPIDAEMIA
  5. PLAVIX [Concomitant]
     Indication: CORONARY ARTERY BYPASS

REACTIONS (1)
  - MYOCARDIAL INFARCTION [None]
